FAERS Safety Report 26128305 (Version 1)
Quarter: 2025Q4

REPORT INFORMATION
  Report Type: Spontaneous
  Country: EU (occurrence: EU)
  Receive Date: 20251207
  Receipt Date: 20251207
  Transmission Date: 20260117
  Serious: Yes (Death)
  Sender: ACCORD
  Company Number: None

PATIENT
  Age: 40 Year
  Sex: Female

DRUGS (3)
  1. METHOTREXATE [Suspect]
     Active Substance: METHOTREXATE
     Indication: Follicular lymphoma
  2. CYTARABINE [Suspect]
     Active Substance: CYTARABINE
     Indication: Follicular lymphoma
     Dates: start: 20250530, end: 20250530
  3. ONCOVIN [Suspect]
     Active Substance: VINCRISTINE SULFATE
     Indication: Follicular lymphoma
     Dates: start: 20250212, end: 202505

REACTIONS (7)
  - Neuropathy peripheral [Fatal]
  - Bell^s palsy [Fatal]
  - Visual impairment [Fatal]
  - Hypoacusis [Fatal]
  - Myelopathy [Fatal]
  - Cranial nerve injury [Fatal]
  - Peripheral sensorimotor neuropathy [Fatal]

NARRATIVE: CASE EVENT DATE: 20250201
